FAERS Safety Report 9298802 (Version 1)
Quarter: 2013Q2

REPORT INFORMATION
  Report Type: Spontaneous
  Country: NL (occurrence: None)
  Receive Date: 20130515
  Receipt Date: 20130515
  Transmission Date: 20140414
  Serious: Yes (Other)
  Sender: FDA-Public Use
  Company Number: 2013-1904

PATIENT
  Age: 57 Year
  Sex: Male

DRUGS (1)
  1. SOMATULINE [Suspect]
     Indication: NEUROENDOCRINE TUMOUR
     Dosage: 60 MG, 1 IN 1 D
     Dates: start: 20130111, end: 20130405

REACTIONS (1)
  - Terminal state [None]
